FAERS Safety Report 8259262-5 (Version None)
Quarter: 2012Q2

REPORT INFORMATION
  Report Type: 
  Country: None (occurrence: None)
  Receive Date: 20120404
  Receipt Date: 20120327
  Transmission Date: 20120825
  Serious: Yes (Hospitalization, Other)
  Sender: FDA-Public Use
  Company Number: US-ASTRAZENECA-2011SE73090

PATIENT
  Age: 75 Year
  Sex: Female

DRUGS (6)
  1. RHINOCORT [Suspect]
     Route: 045
  2. PULMICORT [Concomitant]
     Route: 055
  3. LOVASTATIN [Concomitant]
  4. UNSPECIFIED PAIN MEDICATION [Suspect]
  5. ALBUTEROL [Concomitant]
  6. NEXIUM [Suspect]
     Route: 048

REACTIONS (6)
  - HAEMORRHAGE [None]
  - FATIGUE [None]
  - FEELING ABNORMAL [None]
  - DRUG HYPERSENSITIVITY [None]
  - HIATUS HERNIA [None]
  - BREAST CANCER [None]
